FAERS Safety Report 15420309 (Version 1)
Quarter: 2018Q3

REPORT INFORMATION
  Report Type: Spontaneous
  Country: KR (occurrence: KR)
  Receive Date: 20180924
  Receipt Date: 20180924
  Transmission Date: 20181010
  Serious: Yes (Other)
  Sender: FDA-Public Use
  Company Number: KR-FOUNDATIONCONSUMERHC-2018-KR-000031

PATIENT
  Sex: Female

DRUGS (1)
  1. LEVONORGESTREL (UNSPECIFIED) [Suspect]
     Active Substance: LEVONORGESTREL
     Indication: PRODUCT USED FOR UNKNOWN INDICATION
     Dosage: 1.5 MG,SINGLE ONE TABLET DOSE
     Route: 048
     Dates: start: 20180813, end: 20180813

REACTIONS (5)
  - Pregnancy after post coital contraception [Unknown]
  - Exposure during pregnancy [Recovered/Resolved]
  - Dizziness [Not Recovered/Not Resolved]
  - Drug ineffective [Unknown]
  - Abortion spontaneous [Unknown]

NARRATIVE: CASE EVENT DATE: 20180813
